FAERS Safety Report 6579810-0 (Version None)
Quarter: 2010Q1

REPORT INFORMATION
  Report Type: 
  Country: None (occurrence: None)
  Receive Date: 20100212
  Receipt Date: 20100204
  Transmission Date: 20100710
  Serious: Yes (Hospitalization)
  Sender: FDA-Public Use
  Company Number: US-ROCHE-684288

PATIENT
  Sex: Male
  Weight: 101.2 kg

DRUGS (2)
  1. PEG-INTERFERON ALFA 2A (RO 25-8310) [Suspect]
     Indication: HEPATITIS C
     Dosage: DRUG WAS TEMPORARILY STOPPED.
     Route: 065
     Dates: start: 20080101
  2. RIBAVIRIN [Suspect]
     Indication: HEPATITIS C
     Dosage: DRUG WAS TEMPORARILY STOPPED.
     Route: 048
     Dates: start: 20080101

REACTIONS (4)
  - ANAEMIA [None]
  - LOSS OF CONSCIOUSNESS [None]
  - PALLOR [None]
  - WEIGHT DECREASED [None]
